FAERS Safety Report 6361920-4 (Version None)
Quarter: 2009Q3

REPORT INFORMATION
  Report Type: 
  Country: None (occurrence: None)
  Receive Date: 20090915
  Receipt Date: 20090831
  Transmission Date: 20100115
  Serious: Yes (Hospitalization)
  Sender: FDA-Public Use
  Company Number: 2009002484

PATIENT
  Age: 60 Year
  Sex: Female

DRUGS (16)
  1. ERLOTINIB HYDROCHLORIDE [Suspect]
     Indication: PANCREATIC CARCINOMA
     Dosage: 100 MG, QD, ORAL
     Route: 048
     Dates: start: 20090806, end: 20090810
  2. GEMCITABINE [Suspect]
     Indication: PANCREATIC CARCINOMA
     Dosage: 1000 MG/M2, INTRAVENOUS
     Route: 042
     Dates: start: 20090806, end: 20090810
  3. DUPHALAC [Concomitant]
  4. OXYNORM (OCYCODONE HYDROCHLORIDE) [Concomitant]
  5. OXYCONTIN [Concomitant]
  6. TEMAZEPAM [Concomitant]
  7. CORDEX (CORDEX) [Concomitant]
  8. BUMETANIDE [Concomitant]
  9. CARTREX [Concomitant]
  10. GAVISCON [Concomitant]
  11. OMEPRAZOLE [Concomitant]
  12. SIMVASTATIN [Concomitant]
  13. OXAZEPAM [Concomitant]
  14. TAMIK (DIHYDROERGOTAMINE MESILATE) [Concomitant]
  15. TANAKAN (GINKGO TREE LEAVES EXTRACT) [Concomitant]
  16. TETRAZEPAM (TETRAZEPAM) [Concomitant]

REACTIONS (4)
  - PAIN [None]
  - PYREXIA [None]
  - RASH [None]
  - VOMITING [None]
